FAERS Safety Report 19080473 (Version 1)
Quarter: 2021Q2

REPORT INFORMATION
  Report Type: Spontaneous
  Country: US (occurrence: US)
  Receive Date: 20210401
  Receipt Date: 20210401
  Transmission Date: 20210717
  Serious: Yes (Hospitalization, Other)
  Sender: FDA-Public Use
  Company Number: US-AUROBINDO-AUR-APL-2021-013030

PATIENT
  Age: 64 Year
  Sex: Female

DRUGS (1)
  1. PILOCARPINE HYDROCHLORIDE 5 MG TABLETS [Suspect]
     Active Substance: PILOCARPINE HYDROCHLORIDE
     Indication: DRY MOUTH
     Dosage: 60 5MG TABLETS OF PILOCARPINE
     Route: 048

REACTIONS (7)
  - Intentional overdose [Unknown]
  - Respiratory failure [Recovered/Resolved]
  - Increased bronchial secretion [Recovered/Resolved]
  - Hyperhidrosis [Recovered/Resolved]
  - Hypoxia [Recovered/Resolved]
  - Wheezing [Recovered/Resolved]
  - Cholinergic syndrome [Recovered/Resolved]
